FAERS Safety Report 16812944 (Version 1)
Quarter: 2019Q3

REPORT INFORMATION
  Report Type: Other
  Country: US (occurrence: US)
  Receive Date: 20190916
  Receipt Date: 20190916
  Transmission Date: 20191005
  Serious: No
  Sender: FDA-Public Use
  Company Number: US-LEADIANT BIOSCIENCES INC-2018STPI000595

PATIENT
  Sex: Female

DRUGS (5)
  1. BIOTIN [Concomitant]
     Active Substance: BIOTIN
  2. BUDESONIDE. [Concomitant]
     Active Substance: BUDESONIDE
  3. DICYCLOMINE                        /00068601/ [Suspect]
     Active Substance: DICYCLOMINE HYDROCHLORIDE
  4. MATULANE [Suspect]
     Active Substance: PROCARBAZINE HYDROCHLORIDE
     Indication: BRAIN NEOPLASM MALIGNANT
     Dosage: 100 MG QD ON DAYS 8 - 21
     Dates: start: 20161016
  5. CALCIUM [Concomitant]
     Active Substance: CALCIUM

REACTIONS (1)
  - White blood cell count decreased [Unknown]
